FAERS Safety Report 16856087 (Version 2)
Quarter: 2019Q3

REPORT INFORMATION
  Report Type: Spontaneous
  Country: US (occurrence: US)
  Receive Date: 20190926
  Receipt Date: 20190926
  Transmission Date: 20191005
  Serious: Yes (Hospitalization)
  Sender: FDA-Public Use
  Company Number: US-CELGENEUS-USA-20190908023

PATIENT
  Sex: Female

DRUGS (1)
  1. REVLIMID [Suspect]
     Active Substance: LENALIDOMIDE
     Indication: PLASMA CELL MYELOMA
     Dosage: 25 MILLIGRAM
     Route: 048
     Dates: start: 20190826

REACTIONS (5)
  - Hypotension [Unknown]
  - Vision blurred [Unknown]
  - Abdominal distension [Unknown]
  - Fatigue [Unknown]
  - Dysstasia [Unknown]

NARRATIVE: CASE EVENT DATE: 2019
